FAERS Safety Report 21391014 (Version 1)
Quarter: 2022Q3

REPORT INFORMATION
  Report Type: Spontaneous
  Country: DE (occurrence: DE)
  Receive Date: 20220929
  Receipt Date: 20220929
  Transmission Date: 20221026
  Serious: Yes (Death, Other)
  Sender: FDA-Public Use
  Company Number: DE-EMA-DD-20220912-216281-090820

PATIENT
  Sex: Female

DRUGS (22)
  1. CELECOXIB [Suspect]
     Active Substance: CELECOXIB
     Indication: Medulloblastoma recurrent
     Dosage: DOSE REDUCED
  2. TOPOTECAN [Suspect]
     Active Substance: TOPOTECAN HYDROCHLORIDE
     Indication: Medulloblastoma
     Dosage: UNK, DOSE REDUCED
  3. TOPOTECAN [Suspect]
     Active Substance: TOPOTECAN HYDROCHLORIDE
     Dosage: UNK, CYCLE 1
  4. TOPOTECAN [Suspect]
     Active Substance: TOPOTECAN HYDROCHLORIDE
     Dosage: UNK, CYCLE 2
  5. TOPOTECAN [Suspect]
     Active Substance: TOPOTECAN HYDROCHLORIDE
     Dosage: UNK, CYCLE 4
  6. TEMOZOLOMIDE [Suspect]
     Active Substance: TEMOZOLOMIDE
     Indication: Medulloblastoma
     Dosage: UNK, DOSE REDUCED
  7. TEMOZOLOMIDE [Suspect]
     Active Substance: TEMOZOLOMIDE
     Dosage: UNK, CYCLE 4
  8. TEMOZOLOMIDE [Suspect]
     Active Substance: TEMOZOLOMIDE
     Dosage: UNK, CYCLE 2
  9. TEMOZOLOMIDE [Suspect]
     Active Substance: TEMOZOLOMIDE
     Dosage: UNK, CYCLE 1
  10. THALIDOMIDE [Suspect]
     Active Substance: THALIDOMIDE
     Indication: Medulloblastoma
     Dosage: UNK, CYCLE 4
  11. THALIDOMIDE [Suspect]
     Active Substance: THALIDOMIDE
     Dosage: UNK, DOSE REDUCED
  12. THALIDOMIDE [Suspect]
     Active Substance: THALIDOMIDE
     Dosage: UNK, CYCLE 2
  13. THALIDOMIDE [Suspect]
     Active Substance: THALIDOMIDE
     Dosage: UNK, CYCLE 1
  14. CYTARABINE [Suspect]
     Active Substance: CYTARABINE
     Indication: Medulloblastoma
     Dosage: UNK, CYCLE 1
  15. CYTARABINE [Suspect]
     Active Substance: CYTARABINE
     Dosage: UNK, CYCLE 4
  16. CYTARABINE [Suspect]
     Active Substance: CYTARABINE
     Dosage: UNK, DOSE REDUCED
  17. CYTARABINE [Suspect]
     Active Substance: CYTARABINE
     Dosage: UNK, CYCLE 2
  18. BEVACIZUMAB [Suspect]
     Active Substance: BEVACIZUMAB
     Indication: Medulloblastoma
     Dosage: UNK, CYCLE 1
  19. BEVACIZUMAB [Suspect]
     Active Substance: BEVACIZUMAB
     Dosage: UNK, DOSE REDUCED
  20. BEVACIZUMAB [Suspect]
     Active Substance: BEVACIZUMAB
     Dosage: UNK, CYCLE 2
  21. BEVACIZUMAB [Suspect]
     Active Substance: BEVACIZUMAB
     Dosage: UNK, CYCLE 4
  22. FENOFIBRATE [Suspect]
     Active Substance: FENOFIBRATE
     Indication: Medulloblastoma recurrent
     Dosage: REDUCED DOSE

REACTIONS (12)
  - Multiple-drug resistance [Fatal]
  - Drug ineffective for unapproved indication [Fatal]
  - Malignant neoplasm progression [Not Recovered/Not Resolved]
  - Metastases to bone marrow [Not Recovered/Not Resolved]
  - Leukopenia [Unknown]
  - Pancytopenia [Unknown]
  - Drug ineffective [Unknown]
  - Infection [Unknown]
  - Neck pain [Unknown]
  - Pyrexia [Unknown]
  - Pain in extremity [Unknown]
  - Off label use [Unknown]
